FAERS Safety Report 6292537-8 (Version None)
Quarter: 2009Q3

REPORT INFORMATION
  Report Type: 
  Country: None (occurrence: None)
  Receive Date: 20090731
  Receipt Date: 20070604
  Transmission Date: 20100115
  Serious: Yes (Hospitalization, Other)
  Sender: FDA-Public Use
  Company Number: US-ASTRAZENECA-2006UW27653

PATIENT
  Age: 14386 Day
  Sex: Female
  Weight: 92.1 kg

DRUGS (24)
  1. SEROQUEL [Suspect]
     Indication: DEPRESSION
     Route: 048
     Dates: start: 20020101, end: 20060601
  2. SEROQUEL [Suspect]
     Indication: SLEEP DISORDER
     Route: 048
     Dates: start: 20020101, end: 20060601
  3. SEROQUEL [Suspect]
     Dosage: 100-600MG
     Route: 048
     Dates: start: 20040827
  4. SEROQUEL [Suspect]
     Dosage: 100-600MG
     Route: 048
     Dates: start: 20040827
  5. THORAZINE [Concomitant]
  6. CLONAZEPAM [Concomitant]
     Route: 048
     Dates: start: 20051012
  7. LEVOTHROID [Concomitant]
     Dosage: 50 MCG - 0.05 MG DAILY
     Route: 048
     Dates: start: 20050509
  8. AMBIEN [Concomitant]
     Dosage: 5MG -10MG AS NEEDED
     Route: 048
     Dates: start: 20060912
  9. DILTIAZEM [Concomitant]
     Route: 048
     Dates: start: 20061202
  10. LOPRESSOR [Concomitant]
     Dosage: 5 MG - 100 MG
     Route: 048
     Dates: start: 20050923
  11. FUROSEMIDE [Concomitant]
     Indication: FLUID RETENTION
     Dosage: 20 MG - 40 MG, AS NEEDED
     Route: 048
     Dates: start: 20021018
  12. WARFARIN SODIUM [Concomitant]
     Dosage: 7.5 MG - 10 MG
     Route: 048
     Dates: start: 20030719
  13. LIPITOR [Concomitant]
     Route: 048
     Dates: start: 20050714
  14. TEGRETOL [Concomitant]
     Dates: start: 20051201
  15. ZOLOFT [Concomitant]
     Dosage: 25 MG - 100 MG
     Route: 048
     Dates: start: 20020401
  16. NEURONTIN [Concomitant]
     Dosage: 400 MG - 6400 MG
     Route: 048
     Dates: start: 20020308
  17. CELEBREX [Concomitant]
     Dosage: 10 MG - 200 MG
     Route: 048
     Dates: start: 20020822
  18. FOSINOPRIL SODIUM [Concomitant]
     Route: 048
     Dates: start: 20040109
  19. DEPAKOTE [Concomitant]
     Route: 048
     Dates: start: 20040109
  20. TRAZODONE HCL [Concomitant]
     Route: 048
     Dates: start: 20040703
  21. PAXIL [Concomitant]
     Dosage: 20 - 25 MG, AT NIGHT
     Route: 048
     Dates: start: 20021002
  22. PROTONIX [Concomitant]
     Route: 048
     Dates: start: 20040109
  23. FAMOTIDINE [Concomitant]
     Dosage: 20 MG / 2 ML
     Route: 065
     Dates: start: 20040426
  24. GLIMEPIRIDE [Concomitant]
     Dates: start: 20030719

REACTIONS (3)
  - DIABETES MELLITUS [None]
  - PANCREATITIS [None]
  - PANCREATITIS ACUTE [None]
